FAERS Safety Report 16302681 (Version 1)
Quarter: 2019Q2

REPORT INFORMATION
  Report Type: Spontaneous
  Country: BR (occurrence: BR)
  Receive Date: 20190513
  Receipt Date: 20190513
  Transmission Date: 20190711
  Serious: Yes (Hospitalization)
  Sender: FDA-Public Use
  Company Number: BR-BRISTOL-MYERS SQUIBB COMPANY-BMS-2019-044134

PATIENT
  Age: 79 Year
  Sex: Male
  Weight: 74 kg

DRUGS (9)
  1. HYDROCHLOROTHIAZIDE. [Concomitant]
     Active Substance: HYDROCHLOROTHIAZIDE
     Indication: HYPERTENSION
     Dosage: 1 DOSAGE FORM, QD
     Route: 048
     Dates: start: 2014
  2. LOSARTAN. [Concomitant]
     Active Substance: LOSARTAN
     Indication: HYPERTENSION
     Dosage: 1 DOSAGE FORM, QD
     Route: 048
  3. OMEPRAZOLE. [Concomitant]
     Active Substance: OMEPRAZOLE
     Indication: GASTRIC DISORDER
     Dosage: 1 DOSAGE FORM, QD
     Route: 048
     Dates: start: 2014
  4. METFORMIN HYDROCHLORIDE. [Suspect]
     Active Substance: METFORMIN HYDROCHLORIDE
     Indication: DIABETES MELLITUS
     Dosage: 850 MILLIGRAM, QD
     Route: 048
     Dates: start: 2014
  5. ALENIA [BUDESONIDE;FORMOTEROL FUMARATE] [Concomitant]
     Indication: DYSPNOEA
     Dosage: UNK, 12 MCG/400 MCG, ONE INHALATION (1 IN 1 DAY)
     Dates: start: 201708
  6. ALENIA [BUDESONIDE;FORMOTEROL FUMARATE] [Concomitant]
     Indication: PRODUCT USED FOR UNKNOWN INDICATION
     Dosage: UNK, 12 MCG/400 MCG, ONE INHALATION (1 IN 1 HOUR)
     Dates: end: 201712
  7. ATENOLOL. [Concomitant]
     Active Substance: ATENOLOL
     Indication: HYPERTENSION
     Dosage: 1 DOSAGE FORM, QD
     Route: 048
  8. AMLODIPINE [Concomitant]
     Active Substance: AMLODIPINE BESYLATE
     Indication: HYPERTENSION
     Dosage: 1 DOSAGE FORM, QD
     Route: 048
  9. LEVOID [Concomitant]
     Active Substance: LEVOTHYROXINE
     Indication: HYPOTHYROIDISM
     Dosage: 1 DOSAGE FORM, QD
     Route: 048
     Dates: start: 2009

REACTIONS (5)
  - Hypercholesterolaemia [Not Recovered/Not Resolved]
  - Benign neoplasm of skin [Not Recovered/Not Resolved]
  - Libido decreased [Not Recovered/Not Resolved]
  - Lung disorder [Recovered/Resolved with Sequelae]
  - Aphonia [Not Recovered/Not Resolved]

NARRATIVE: CASE EVENT DATE: 2016
